APPROVED DRUG PRODUCT: THEOLAIR
Active Ingredient: THEOPHYLLINE
Strength: 80MG/15ML
Dosage Form/Route: SOLUTION;ORAL
Application: A086107 | Product #001
Applicant: 3M PHARMACEUTICALS INC
Approved: Approved Prior to Jan 1, 1982 | RLD: No | RS: No | Type: DISCN